FAERS Safety Report 13492980 (Version 1)
Quarter: 2017Q2

REPORT INFORMATION
  Report Type: Spontaneous
  Country: US (occurrence: US)
  Receive Date: 20170427
  Receipt Date: 20170427
  Transmission Date: 20170830
  Serious: Yes (Disabling)
  Sender: FDA-Public Use
  Company Number: US-ROCHE-1229536

PATIENT
  Sex: Male

DRUGS (1)
  1. ERIVEDGE [Suspect]
     Active Substance: VISMODEGIB
     Indication: SOFT TISSUE SARCOMA
     Route: 048
     Dates: start: 20130214

REACTIONS (2)
  - Dysgeusia [Unknown]
  - Constipation [Unknown]
